FAERS Safety Report 21016576 (Version 1)
Quarter: 2022Q2

REPORT INFORMATION
  Report Type: Other
  Country: CA (occurrence: CA)
  Receive Date: 20220628
  Receipt Date: 20220628
  Transmission Date: 20220721
  Serious: Yes (Hospitalization, Other)
  Sender: FDA-Public Use
  Company Number: CA-APOTEX-2022AP009478

PATIENT
  Age: 30 Year
  Sex: Male
  Weight: 131 kg

DRUGS (10)
  1. DESMOPRESSIN [Suspect]
     Active Substance: DESMOPRESSIN
     Indication: Product used for unknown indication
     Dosage: UNK
     Route: 065
  2. SANDOSTATIN [Suspect]
     Active Substance: OCTREOTIDE ACETATE
     Indication: Acromegaly
     Dosage: 20 MILLIGRAM
     Route: 030
  3. SANDOSTATIN [Suspect]
     Active Substance: OCTREOTIDE ACETATE
     Dosage: 30 MILLIGRAM, Q.M.T.
     Route: 030
  4. SANDOSTATIN [Suspect]
     Active Substance: OCTREOTIDE ACETATE
     Dosage: 20 MILLIGRAM, Q.M.T.
     Route: 030
  5. SANDOSTATIN [Suspect]
     Active Substance: OCTREOTIDE ACETATE
     Dosage: 10 MILLIGRAM, ONCE EVERY FOUR WEEK
     Route: 030
  6. SANDOSTATIN [Suspect]
     Active Substance: OCTREOTIDE ACETATE
     Dosage: 40 MILLIGRAM, ONCE EVERY FOUR WEEK
     Route: 030
  7. VENLAFAXINE HYDROCHLORIDE [Concomitant]
     Active Substance: VENLAFAXINE HYDROCHLORIDE
     Indication: Depression
     Dosage: UNK
     Route: 065
  8. ATACAND [Concomitant]
     Active Substance: CANDESARTAN CILEXETIL
     Indication: Product used for unknown indication
     Dosage: UNK
     Route: 065
  9. CORTEF [Concomitant]
     Active Substance: HYDROCORTISONE
     Indication: Product used for unknown indication
     Dosage: UNK
     Route: 048
  10. LEVOTHYROXINE [Concomitant]
     Active Substance: LEVOTHYROXINE
     Indication: Product used for unknown indication
     Dosage: UNK
     Route: 065

REACTIONS (22)
  - Anxiety [Unknown]
  - Asthenia [Unknown]
  - Blood growth hormone decreased [Unknown]
  - Blood growth hormone increased [Unknown]
  - Chest discomfort [Unknown]
  - Disorientation [Unknown]
  - Fatigue [Unknown]
  - Hyperhidrosis [Unknown]
  - Hypoglycaemia [Unknown]
  - Hypothyroidism [Unknown]
  - Inadequate diet [Unknown]
  - Inappropriate schedule of product administration [Unknown]
  - Malaise [Unknown]
  - Panic attack [Unknown]
  - Social anxiety disorder [Unknown]
  - Stress [Unknown]
  - Tremor [Unknown]
  - Urine flow decreased [Unknown]
  - Weight increased [Unknown]
  - Abdominal pain [Unknown]
  - Blood pressure increased [Unknown]
  - Blood pressure systolic increased [Unknown]
